FAERS Safety Report 7530562-7 (Version None)
Quarter: 2011Q2

REPORT INFORMATION
  Report Type: 
  Country: None (occurrence: None)
  Receive Date: 20110607
  Receipt Date: 20090216
  Transmission Date: 20111010
  Serious: Yes (Death, Other)
  Sender: FDA-Public Use
  Company Number: US-BAYER-200913505NA

PATIENT
  Age: 71 Year
  Sex: Female
  Weight: 71 kg

DRUGS (11)
  1. VASOTEC [Concomitant]
     Dosage: 1.25 MG
     Route: 042
     Dates: start: 20031002, end: 20031002
  2. PROTAMINE SULFATE [Concomitant]
     Dosage: 330 MG
     Route: 042
     Dates: start: 20031120, end: 20031120
  3. TRASYLOL [Suspect]
     Indication: MITRAL VALVE REPAIR
     Dosage: INITIAL (TEST) DOSE OF 1 ML
     Route: 042
     Dates: start: 20031120, end: 20031122
  4. AMIODARONE HCL [Concomitant]
     Dosage: 200 MG DAILY
     Route: 048
  5. TRASYLOL [Suspect]
     Dosage: 100 CC IV LOADING DOSE THEN TRASYLOL 25 CC PER HOUR
     Route: 042
     Dates: start: 20031120, end: 20031120
  6. MACROBID [Concomitant]
     Dosage: 100 MG DAILY
     Route: 048
     Dates: end: 20031119
  7. FUROSEMIDE [Concomitant]
     Dosage: 40 MG DAILY
     Route: 048
  8. FUROSEMIDE [Concomitant]
     Dosage: 5 MG
     Route: 042
     Dates: start: 20031120
  9. DIOVAN [Concomitant]
     Dosage: 80 MG DAILY
     Dates: end: 20031119
  10. WHOLE BLOOD [Concomitant]
     Dosage: 3 UNITS
     Dates: start: 20031120
  11. HEPARIN [Concomitant]
     Dosage: 1000 UNITS
     Route: 042
     Dates: start: 20031120, end: 20031120

REACTIONS (11)
  - RENAL INJURY [None]
  - ANHEDONIA [None]
  - STRESS [None]
  - INJURY [None]
  - UNEVALUABLE EVENT [None]
  - EMOTIONAL DISTRESS [None]
  - FEAR [None]
  - RENAL IMPAIRMENT [None]
  - DEATH [None]
  - ANXIETY [None]
  - PAIN [None]
